FAERS Safety Report 6618343-X (Version None)
Quarter: 2010Q1

REPORT INFORMATION
  Report Type: 
  Country: None (occurrence: None)
  Receive Date: 20100308
  Receipt Date: 20100226
  Transmission Date: 20100710
  Serious: Yes (Death)
  Sender: FDA-Public Use
  Company Number: A0845801A

PATIENT
  Sex: Male
  Weight: 73 kg

DRUGS (3)
  1. LAPATINIB [Suspect]
     Dosage: 1500MG PER DAY
     Route: 048
     Dates: start: 20091216
  2. CISPLATIN [Suspect]
     Dosage: 100MGM2 CYCLIC
     Route: 042
     Dates: start: 20091221
  3. RADIOTHERAPY [Suspect]
     Dosage: 6GY VARIABLE DOSE
     Route: 061
     Dates: start: 20091221

REACTIONS (1)
  - PULMONARY EMBOLISM [None]
